FAERS Safety Report 18281961 (Version 1)
Quarter: 2020Q3

REPORT INFORMATION
  Report Type: Spontaneous
  Country: DK (occurrence: DK)
  Receive Date: 20200918
  Receipt Date: 20200918
  Transmission Date: 20201103
  Serious: Yes (Hospitalization)
  Sender: FDA-Public Use
  Company Number: DK-MYLANLABS-2020M1078746

PATIENT
  Age: 75 Year
  Sex: Male

DRUGS (8)
  1. CLOPIDOGREL [Suspect]
     Active Substance: CLOPIDOGREL BISULFATE
     Indication: THROMBOSIS PROPHYLAXIS
     Dosage: 75 MILLIGRAM, QD (STRENGTH: 75 MG)
     Route: 048
     Dates: start: 20130328
  2. CALCIUM + VIT D [Concomitant]
     Active Substance: CALCIUM\VITAMIN D
     Indication: SUPPLEMENTATION THERAPY
     Dosage: 2 DOSAGE FORM, QD(STRENGTH: 400 MG + 19 ?G)
     Route: 048
     Dates: start: 20200706
  3. NITROLINGUAL [Concomitant]
     Active Substance: NITROGLYCERIN
     Indication: ANGINA PECTORIS
     Dosage: 0.4 MILLIGRAM, PRN (STRENGTH: 0.4 MG/DOSE, DOSAGE: 1 DOSE BY PAIN)
     Route: 060
     Dates: start: 20100504
  4. ALLOPURINOL. [Concomitant]
     Active Substance: ALLOPURINOL
     Indication: GOUT
     Dosage: 100 MILLIGRAM, QD (STRENGTH: 100 MG)
     Route: 048
     Dates: start: 20200625
  5. LACTULOSE. [Concomitant]
     Active Substance: LACTULOSE
     Indication: CONSTIPATION
     Dosage: 15 MILLILITER, PRN (STRENGTH: 667 MG/ML, DOSAGE: 15 ML AS NECESSARY, MAXIMUM 3 TIMES A DAY)
     Route: 048
     Dates: start: 20200709
  6. XARELTO [Suspect]
     Active Substance: RIVAROXABAN
     Indication: THROMBOSIS PROPHYLAXIS
     Dosage: 10 MILLIGRAM, QD(STRENGTH: 10 MG)
     Route: 048
     Dates: start: 20200723, end: 20200806
  7. THIAMINE. [Concomitant]
     Active Substance: THIAMINE
     Indication: VITAMIN SUPPLEMENTATION
     Dosage: 300 MILLIGRAM, QD(STRENGTH: 300 MG)
     Route: 048
     Dates: start: 20180606
  8. APOVIT B COMBIN [Concomitant]
     Indication: VITAMIN SUPPLEMENTATION
     Dosage: 3 DOSAGE FORM, QD
     Route: 048
     Dates: start: 20200709

REACTIONS (3)
  - Melaena [Unknown]
  - Cardiovascular insufficiency [Unknown]
  - Haemorrhage [Unknown]

NARRATIVE: CASE EVENT DATE: 202008
